FAERS Safety Report 23903895 (Version 2)
Quarter: 2024Q2

REPORT INFORMATION
  Report Type: Other
  Country: CA (occurrence: CA)
  Receive Date: 20240527
  Receipt Date: 20240620
  Transmission Date: 20240716
  Serious: Yes (Hospitalization, Other)
  Sender: FDA-Public Use
  Company Number: CA-APOTEX-2024AP006338

PATIENT
  Sex: Male

DRUGS (1)
  1. DASATINIB [Suspect]
     Active Substance: DASATINIB
     Indication: Chronic myeloid leukaemia
     Dosage: 20 MILLIGRAM, QD
     Route: 048
     Dates: start: 20231110

REACTIONS (3)
  - Chest pain [Recovered/Resolved]
  - Pleural effusion [Recovered/Resolved]
  - Pericardial effusion [Recovered/Resolved]
